FAERS Safety Report 4710708-6 (Version None)
Quarter: 2005Q3

REPORT INFORMATION
  Report Type: 
  Country: None (occurrence: None)
  Receive Date: 20050707
  Receipt Date: 20050617
  Transmission Date: 20060218
  Serious: Yes (Other)
  Sender: FDA-Public Use
  Company Number: FR_050606672

PATIENT
  Age: 71 Year
  Sex: Female

DRUGS (1)
  1. FORSTEO (TERIPARATIDE) [Suspect]
     Indication: OSTEOPOROSIS
     Dosage: 20 UG DAY
     Dates: start: 20050110

REACTIONS (5)
  - CONDITION AGGRAVATED [None]
  - N-TELOPEPTIDE URINE INCREASED [None]
  - OSTEOCALCIN INCREASED [None]
  - PAIN [None]
  - SPINAL FRACTURE [None]
